FAERS Safety Report 18067593 (Version 6)
Quarter: 2021Q3

REPORT INFORMATION
  Report Type: Spontaneous
  Country: US (occurrence: US)
  Receive Date: 20200724
  Receipt Date: 20210726
  Transmission Date: 20211014
  Serious: Yes (Hospitalization)
  Sender: FDA-Public Use
  Company Number: US-SA-2020SA186189

PATIENT
  Age: 78 Year
  Sex: Female

DRUGS (3)
  1. DUPIXENT [Suspect]
     Active Substance: DUPILUMAB
     Indication: ASTHMA
     Dosage: 600 MG, 1X
     Route: 058
     Dates: start: 202003, end: 202003
  2. DUPIXENT [Suspect]
     Active Substance: DUPILUMAB
     Dosage: 300 MG, QOW
     Route: 058
     Dates: start: 2020
  3. DULERA [Concomitant]
     Active Substance: FORMOTEROL FUMARATE DIHYDRATE\MOMETASONE FUROATE

REACTIONS (14)
  - Depression [Unknown]
  - Headache [Unknown]
  - Weight increased [Unknown]
  - Myositis [Unknown]
  - Arthralgia [Unknown]
  - Oral candidiasis [Unknown]
  - Therapy interrupted [Unknown]
  - Blood sodium decreased [Unknown]
  - Fibromyalgia [Unknown]
  - Myalgia [Unknown]
  - Insomnia [Unknown]
  - Product use issue [Unknown]
  - Oral herpes [Unknown]
  - Anxiety [Unknown]

NARRATIVE: CASE EVENT DATE: 2020
